FAERS Safety Report 20762569 (Version 1)
Quarter: 2022Q2

REPORT INFORMATION
  Report Type: Spontaneous
  Country: US (occurrence: None)
  Receive Date: 20220427
  Receipt Date: 20220427
  Transmission Date: 20220721
  Serious: Yes (Disabling, Other)
  Sender: FDA-Public Use
  Company Number: None

PATIENT
  Age: 58 Year
  Sex: Male
  Weight: 81 kg

DRUGS (8)
  1. REPATHA [Suspect]
     Active Substance: EVOLOCUMAB
     Indication: Blood cholesterol increased
     Dosage: OTHER QUANTITY : 1 INJECTION(S);?OTHER FREQUENCY : EVERY 2 WEEKS;?
     Route: 061
     Dates: start: 20200801, end: 20211201
  2. LAMOTRIGINE [Concomitant]
     Active Substance: LAMOTRIGINE
  3. TRAZODONE [Concomitant]
     Active Substance: TRAZODONE HYDROCHLORIDE
  4. XANAX [Concomitant]
     Active Substance: ALPRAZOLAM
  5. TRAMADOL [Concomitant]
     Active Substance: TRAMADOL
  6. REFRESH SOLUTION NOS [Concomitant]
     Active Substance: CARBOXYMETHYLCELLULOSE SODIUM\GLYCERIN
  7. SYSTANE EYEDROPS [Concomitant]
     Active Substance: POLYETHYLENE GLYCOL 400\PROPYLENE GLYCOL
  8. Hydrocortisone 1% cream [Concomitant]

REACTIONS (10)
  - Mental disorder [None]
  - Drug ineffective [None]
  - Muscular weakness [None]
  - Muscle spasms [None]
  - Arthralgia [None]
  - Arthralgia [None]
  - Nocturia [None]
  - Middle insomnia [None]
  - Poor quality sleep [None]
  - Myalgia [None]

NARRATIVE: CASE EVENT DATE: 20200901
